FAERS Safety Report 25435859 (Version 1)
Quarter: 2025Q2

REPORT INFORMATION
  Report Type: Spontaneous
  Country: US (occurrence: None)
  Receive Date: 20250612
  Receipt Date: 20250612
  Transmission Date: 20250716
  Serious: Yes (Other)
  Sender: FDA-CTU
  Company Number: None

PATIENT
  Age: 77 Year
  Sex: Female
  Weight: 59 kg

DRUGS (1)
  1. VENOFER [Suspect]
     Active Substance: IRON SUCROSE
     Indication: Anaemia
     Dosage: 200 MG DAILY INTRAVENOUS?
     Route: 042
     Dates: start: 20250603, end: 20250603

REACTIONS (11)
  - Infusion site phlebitis [None]
  - Blood pressure increased [None]
  - Brain fog [None]
  - Muscle spasms [None]
  - Infusion related reaction [None]
  - Aphasia [None]
  - Injection site extravasation [None]
  - Therapy interrupted [None]
  - Feeling abnormal [None]
  - Chest discomfort [None]
  - Sensation of blood flow [None]

NARRATIVE: CASE EVENT DATE: 20250603
